FAERS Safety Report 9618017 (Version 2)
Quarter: 2013Q4

REPORT INFORMATION
  Report Type: Report from Study
  Country: JP (occurrence: JP)
  Receive Date: 20131011
  Receipt Date: 20131021
  Transmission Date: 20140711
  Serious: Yes (Other)
  Sender: FDA-Public Use
  Company Number: JP-ASTRAZENECA-2013SE74576

PATIENT
  Age: 65 Year
  Sex: Male

DRUGS (12)
  1. MEVALOTIN [Suspect]
     Dates: start: 20120201, end: 20120523
  2. CRESTOR [Suspect]
     Indication: HYPERCHOLESTEROLAEMIA
     Route: 048
     Dates: start: 20130724
  3. ACTOS [Concomitant]
     Indication: DIABETES MELLITUS
     Route: 065
     Dates: end: 20131001
  4. GLYCORAN [Concomitant]
     Indication: DIABETES MELLITUS
     Route: 065
  5. AMARYL [Concomitant]
     Indication: DIABETES MELLITUS
     Route: 065
     Dates: end: 20131001
  6. AMARYL [Concomitant]
     Indication: DIABETES MELLITUS
     Route: 065
     Dates: start: 20131002
  7. OLMETEC [Concomitant]
     Indication: HYPERTENSION
     Route: 065
     Dates: start: 20121128, end: 20131001
  8. OLMETEC [Concomitant]
     Indication: HYPERTENSION
     Route: 065
     Dates: start: 20131002
  9. LIVALO (PITAVASTATIN CALCIUM) [Concomitant]
     Dates: start: 20120524, end: 20130723
  10. GLACTIV (SITAGLIPTIN PHOSPHATE HYDRATE) [Concomitant]
     Indication: DIABETES MELLITUS
     Dates: end: 20130723
  11. REZALTAS (OLMESARTAN MEDOXOMIL_AZELNIDIPINE COMBINED DRUG) [Concomitant]
     Indication: HYPERTENSION
     Dates: end: 20121127
  12. CALBLOCK (AZELNIDIPINE) [Concomitant]
     Indication: HYPERTENSION
     Dates: start: 20121128, end: 20130723

REACTIONS (1)
  - Colon cancer [Recovered/Resolved]
